FAERS Safety Report 7441890-8 (Version None)
Quarter: 2011Q2

REPORT INFORMATION
  Report Type: 
  Country: None (occurrence: None)
  Receive Date: 20110428
  Receipt Date: 20100609
  Transmission Date: 20111010
  Serious: No
  Sender: FDA-Public Use
  Company Number: US-ASTRAZENECA-2010SE26822

PATIENT
  Sex: Female

DRUGS (2)
  1. ZOMIG [Suspect]
     Route: 045
  2. ZOMIG [Suspect]
     Route: 048

REACTIONS (2)
  - DRUG DOSE OMISSION [None]
  - MIGRAINE [None]
